FAERS Safety Report 5091655-X (Version None)
Quarter: 2006Q3

REPORT INFORMATION
  Report Type: 
  Country: None (occurrence: None)
  Receive Date: 20060829
  Receipt Date: 20030203
  Transmission Date: 20061208
  Serious: Yes (Other)
  Sender: FDA-Public Use
  Company Number: PHBS2003BR01504

PATIENT
  Age: 45 Year
  Sex: Male
  Weight: 90 kg

DRUGS (5)
  1. LEPONEX [Suspect]
     Indication: SCHIZOPHRENIA
     Dosage: 400 MG/D
     Route: 048
  2. LEPONEX [Suspect]
     Dosage: 200 MG/D
     Route: 048
  3. CIPRAMIL [Concomitant]
     Dosage: 1 TABLET/D
     Route: 048
  4. INTERFERON [Suspect]
     Indication: HEPATITIS C
     Dosage: THREE AMPOULES/WEEK
     Route: 065
  5. RIBAVIRIN [Suspect]
     Indication: HEPATITIS C
     Dosage: 1.250 MG/D
     Route: 065

REACTIONS (7)
  - LYMPHOCYTE COUNT DECREASED [None]
  - MONOCYTE COUNT DECREASED [None]
  - NEUTROPHIL COUNT DECREASED [None]
  - PLATELET COUNT DECREASED [None]
  - RED BLOOD CELL COUNT DECREASED [None]
  - THROMBOCYTOPENIA [None]
  - WHITE BLOOD CELL COUNT DECREASED [None]
